FAERS Safety Report 8524178-3 (Version None)
Quarter: 2012Q3

REPORT INFORMATION
  Report Type: 
  Country: None (occurrence: None)
  Receive Date: 20120720
  Receipt Date: 20120718
  Transmission Date: 20120928
  Serious: Yes (Disabling)
  Sender: FDA-Public Use
  Company Number: US-PFIZER INC-2012073682

PATIENT
  Sex: Male
  Weight: 88.889 kg

DRUGS (7)
  1. KLONOPIN [Concomitant]
     Indication: DEPRESSION
     Dosage: UNK
  2. SERTRALINE HYDROCHLORIDE [Suspect]
     Indication: DEPRESSION
     Dosage: 100 MG, 2X/DAY
     Route: 048
     Dates: start: 20120501
  3. WELLBUTRIN XL [Concomitant]
     Indication: DEPRESSION
     Dosage: UNK
  4. EFFEXOR XR [Suspect]
     Dosage: 150 MG, 3X/DAY
     Dates: start: 19900101, end: 20120501
  5. EFFEXOR XR [Suspect]
     Indication: DEPRESSION
     Dosage: 3- 150MG (450MG DAILY)
  6. ZOLOFT [Suspect]
     Dosage: 2- 100 MG (200MG DAILY)
  7. VENLAFAXINE HCL [Suspect]
     Indication: DEPRESSION
     Dosage: 150 MG, 3X/DAY
     Route: 048
     Dates: start: 20120501

REACTIONS (3)
  - ACCIDENT AT WORK [None]
  - DRUG INEFFECTIVE [None]
  - BACK INJURY [None]
